FAERS Safety Report 9271252 (Version 2)
Quarter: 2013Q2

REPORT INFORMATION
  Report Type: Spontaneous
  Country: US (occurrence: US)
  Receive Date: 20130506
  Receipt Date: 20130523
  Transmission Date: 20140414
  Serious: No
  Sender: FDA-Public Use
  Company Number: US-AMGEN-USASP2013011855

PATIENT
  Age: 70 Year
  Sex: Female
  Weight: 61.68 kg

DRUGS (10)
  1. PROLIA [Suspect]
     Indication: OSTEOPOROSIS POSTMENOPAUSAL
     Dosage: 60 MG, UNK
     Route: 058
     Dates: start: 20130205
  2. AMLODIPINE [Concomitant]
     Dosage: 2.5 MG, BID
  3. CIPROFLOXACIN [Concomitant]
     Dosage: 250 MG, BID
  4. LOSARTAN K [Concomitant]
     Dosage: 100 MG, QD
     Route: 048
  5. HYDROCHLOROTHIAZIDE [Concomitant]
     Dosage: 25 MG, QD
     Route: 048
  6. PROZAC [Concomitant]
     Dosage: 10 MG, QD
     Route: 048
  7. CALCIUM + VITAMIN D                /01483701/ [Concomitant]
     Route: 048
  8. VITAMIN D                          /00107901/ [Concomitant]
     Route: 048
  9. FISH OIL [Concomitant]
  10. XANAX [Concomitant]
     Dosage: 25 MG, QD

REACTIONS (8)
  - Flushing [Unknown]
  - Urinary tract infection [Unknown]
  - Rash papular [Unknown]
  - Adverse drug reaction [Unknown]
  - Back pain [Unknown]
  - Arthralgia [Unknown]
  - Erythema [Unknown]
  - Rash [Recovered/Resolved]
